FAERS Safety Report 8503829-3 (Version None)
Quarter: 2012Q3

REPORT INFORMATION
  Report Type: 
  Country: None (occurrence: None)
  Receive Date: 20120711
  Receipt Date: 20120702
  Transmission Date: 20120928
  Serious: Yes (Hospitalization, Other)
  Sender: FDA-Public Use
  Company Number: US-JNJFOC-20120701066

PATIENT
  Sex: Female

DRUGS (2)
  1. REMICADE [Suspect]
     Indication: RHEUMATOID ARTHRITIS
     Route: 042
     Dates: start: 20111111, end: 20111128
  2. REMICADE [Suspect]
     Indication: CROHN'S DISEASE
     Route: 042
     Dates: start: 20111111, end: 20111128

REACTIONS (9)
  - ABASIA [None]
  - OEDEMA PERIPHERAL [None]
  - IRRITABILITY [None]
  - EMOTIONAL DISORDER [None]
  - GAIT DISTURBANCE [None]
  - PAIN [None]
  - FALL [None]
  - HOSPITALISATION [None]
  - CONTUSION [None]
